FAERS Safety Report 9145451 (Version 1)
Quarter: 2013Q1

REPORT INFORMATION
  Report Type: Spontaneous
  Country: US (occurrence: None)
  Receive Date: 20130226
  Receipt Date: 20130226
  Transmission Date: 20140127
  Serious: Yes (Other)
  Sender: FDA-Public Use
  Company Number: None

PATIENT
  Age: 3 Year
  Sex: Male
  Weight: 19.05 kg

DRUGS (1)
  1. SINGULAIR [Suspect]
     Indication: ASTHMA
     Dosage: 4MG ONCE A DAY PO
     Route: 048
     Dates: start: 20130119, end: 20130213

REACTIONS (5)
  - Aggression [None]
  - Irritability [None]
  - Depression [None]
  - Mood swings [None]
  - Abnormal behaviour [None]
